FAERS Safety Report 4466229-1 (Version None)
Quarter: 2004Q4

REPORT INFORMATION
  Report Type: 
  Country: None (occurrence: None)
  Receive Date: 20041005
  Receipt Date: 20040927
  Transmission Date: 20050328
  Serious: Yes (Other)
  Sender: FDA-Public Use
  Company Number: US-JNJFOC-20040909396

PATIENT
  Age: 76 Year
  Sex: Female

DRUGS (3)
  1. RISPERDAL [Suspect]
     Route: 049
  2. RISPERDAL [Suspect]
     Route: 049
  3. TRAZODONE HCL [Concomitant]
     Dosage: TAKEN AT NIGHT
     Route: 049

REACTIONS (4)
  - COMA [None]
  - HEART RATE DECREASED [None]
  - MEDICATION ERROR [None]
  - SOMNOLENCE [None]
